FAERS Safety Report 5734940-8 (Version None)
Quarter: 2008Q2

REPORT INFORMATION
  Report Type: 
  Country: None (occurrence: None)
  Receive Date: 20080508
  Receipt Date: 20080508
  Transmission Date: 20081010
  Serious: No
  Sender: FDA-Public Use
  Company Number: None

PATIENT
  Age: 64 Year
  Sex: Female
  Weight: 63.5036 kg

DRUGS (1)
  1. CREST PRO HEALTH NIGHT ORAL RINSE (ALCOHOL FREE) [Suspect]
     Indication: DENTAL DISORDER PROPHYLAXIS
     Dosage: ONE OUNCE-ORAL RINSE NIGHTLY PO
     Route: 048
     Dates: start: 20080301, end: 20080506

REACTIONS (2)
  - DYSGEUSIA [None]
  - TOOTH DISCOLOURATION [None]
